FAERS Safety Report 15891098 (Version 1)
Quarter: 2019Q1

REPORT INFORMATION
  Report Type: Spontaneous
  Country: US (occurrence: US)
  Receive Date: 20190130
  Receipt Date: 20190130
  Transmission Date: 20190417
  Serious: No
  Sender: FDA-Public Use
  Company Number: US-ALLERGAN-1805529US

PATIENT
  Age: 40 Year
  Sex: Male
  Weight: 113.38 kg

DRUGS (1)
  1. VIIBRYD [Suspect]
     Active Substance: VILAZODONE HYDROCHLORIDE
     Indication: DEPRESSION
     Dosage: 10 MG, QID
     Route: 048
     Dates: start: 20180119, end: 20180125

REACTIONS (9)
  - Inappropriate schedule of product administration [Unknown]
  - Dizziness [Not Recovered/Not Resolved]
  - Headache [Unknown]
  - Vertigo [Unknown]
  - Ear pain [Not Recovered/Not Resolved]
  - Vision blurred [Recovering/Resolving]
  - Nausea [Unknown]
  - Paraesthesia [Not Recovered/Not Resolved]
  - Feeling drunk [Unknown]

NARRATIVE: CASE EVENT DATE: 201801
